FAERS Safety Report 5081626-1 (Version None)
Quarter: 2006Q3

REPORT INFORMATION
  Report Type: 
  Country: None (occurrence: None)
  Receive Date: 20060810
  Receipt Date: 20060727
  Transmission Date: 20061208
  Serious: Yes (Other)
  Sender: FDA-Public Use
  Company Number: JP200601002978

PATIENT
  Age: 70 Year
  Sex: Male

DRUGS (1)
  1. GEMZAR(GEMCITABIEN HYDROCHLORIDE) VIAL [Suspect]
     Indication: PANCREATIC CARCINOMA
     Dosage: 1200 MG, OTHER, INTRAVENOUS
     Route: 042
     Dates: start: 20060106

REACTIONS (1)
  - VENOUS THROMBOSIS LIMB [None]
